FAERS Safety Report 6573527 (Version 2)
Quarter: 2015Q4

REPORT INFORMATION
  Report Type: Spontaneous
  Country: AU (occurrence: AU)
  Receive Date: 20080307
  Receipt Date: 20151015
  Transmission Date: 20160305
  Serious: Yes (Hospitalization, Other)
  Sender: FDA-Public Use
  Company Number: AU-PFIZER INC-2008018602

PATIENT
  Age: 40 Year
  Sex: Male

DRUGS (2)
  1. QUININE [Suspect]
     Active Substance: QUININE
     Indication: LICE INFESTATION
     Dosage: UNK
  2. CHAMPIX [Suspect]
     Active Substance: VARENICLINE TARTRATE
     Dosage: UNK

REACTIONS (6)
  - Renal haematoma [Unknown]
  - Tongue ulceration [Unknown]
  - Blood urine present [Unknown]
  - Lip ulceration [Unknown]
  - Thrombocytopenia [Unknown]
  - Haemorrhage [Unknown]
